FAERS Safety Report 5020691-4 (Version None)
Quarter: 2006Q2

REPORT INFORMATION
  Report Type: 
  Country: None (occurrence: None)
  Receive Date: 20060602
  Receipt Date: 20060526
  Transmission Date: 20061013
  Serious: Yes (Hospitalization)
  Sender: FDA-Public Use
  Company Number: PERC20050042

PATIENT
  Age: 63 Year
  Sex: Female

DRUGS (21)
  1. PERCOCET [Suspect]
     Indication: BACK PAIN
     Dosage: 40 MG DAILY PO
     Route: 048
     Dates: start: 19880101
  2. OXYCONTIN [Suspect]
     Indication: BACK PAIN
     Dosage: 30 MG Q12H PO
     Route: 048
     Dates: start: 20050501
  3. CEP- 25608 J+J [Suspect]
     Indication: BREAKTHROUGH PAIN
     Dosage: 200 UG PRN BUCCAL
     Route: 002
     Dates: start: 20050823, end: 20050913
  4. LIDODERM [Concomitant]
  5. DITROPAN [Concomitant]
  6. SOMA [Concomitant]
  7. THEOPHYLLINE [Concomitant]
  8. BISACODYL [Concomitant]
  9. PAMELOR [Concomitant]
  10. HYDROCHLOROTHIAZIDE [Concomitant]
  11. ATENOLOL [Concomitant]
  12. PROCARDIA [Concomitant]
  13. CELEBREX [Concomitant]
  14. DOCUSATE [Concomitant]
  15. VALIUM [Concomitant]
  16. ZANAFLEX [Concomitant]
  17. FIORICET [Concomitant]
  18. FLONASE [Concomitant]
  19. ENULOSE [Concomitant]
  20. PREVACID [Concomitant]
  21. IPRATROPIUM BROMIDE [Concomitant]

REACTIONS (3)
  - ABDOMINAL PAIN [None]
  - CONDITION AGGRAVATED [None]
  - NEUROGENIC BLADDER [None]
